FAERS Safety Report 9383303 (Version 1)
Quarter: 2013Q3

REPORT INFORMATION
  Report Type: Report from Study
  Country: FR (occurrence: FR)
  Receive Date: 20130704
  Receipt Date: 20130704
  Transmission Date: 20140515
  Serious: Yes (Hospitalization)
  Sender: FDA-Public Use
  Company Number: FR-ROCHE-1244516

PATIENT
  Sex: Female

DRUGS (16)
  1. RITUXIMAB [Suspect]
     Indication: B-CELL LYMPHOMA
     Dosage: INDUCTION TREATMENT - FIRST COURSE.   SECOND, THIRD AND FOURTH COURSE OF INDUCTION TREATMENT WERE RE
     Route: 065
     Dates: start: 20080109
  2. RITUXIMAB [Suspect]
     Dosage: SECOND PROGRESSION OF THE DISEASE - FIRST COURSE
     Route: 065
     Dates: start: 20081128
  3. RITUXIMAB [Suspect]
     Dosage: SECOND COURSE
     Route: 065
     Dates: start: 20081217
  4. RITUXIMAB [Suspect]
     Dosage: THIRD COURSE
     Route: 065
     Dates: start: 20090107
  5. VEPESIDE [Concomitant]
     Dosage: FIRST COURSE
     Route: 065
     Dates: start: 20081128
  6. VEPESIDE [Concomitant]
     Dosage: SECOND COURSE
     Route: 065
     Dates: start: 20081217
  7. VEPESIDE [Concomitant]
     Dosage: THIRD COURSE
     Route: 065
     Dates: start: 20090107
  8. UROMITEXAN [Concomitant]
     Dosage: FIRST COURSE
     Route: 065
     Dates: start: 20081128
  9. UROMITEXAN [Concomitant]
     Dosage: SECOND COURSE
     Route: 065
     Dates: start: 20081217
  10. UROMITEXAN [Concomitant]
     Dosage: THIRD COURSE
     Route: 065
     Dates: start: 20090107
  11. NOVANTRONE [Concomitant]
     Dosage: FIRST COURSE
     Route: 065
     Dates: start: 20081128
  12. NOVANTRONE [Concomitant]
     Dosage: SECOND COURSE
     Route: 065
     Dates: start: 20081217
  13. NOVANTRONE [Concomitant]
     Dosage: THIRD COURSE
     Route: 065
     Dates: start: 20090107
  14. HOLOXAN [Concomitant]
     Dosage: FIRST COURSE
     Route: 065
     Dates: start: 20081128
  15. HOLOXAN [Concomitant]
     Dosage: SECOND COURSE
     Route: 065
     Dates: start: 20081217
  16. HOLOXAN [Concomitant]
     Dosage: THIRD COURSE
     Route: 065
     Dates: start: 20090107

REACTIONS (2)
  - Febrile bone marrow aplasia [Unknown]
  - Pyrexia [Unknown]
